FAERS Safety Report 5011175-8 (Version None)
Quarter: 2006Q2

REPORT INFORMATION
  Report Type: 
  Country: None (occurrence: None)
  Receive Date: 20060523
  Receipt Date: 20050615
  Transmission Date: 20061013
  Serious: Yes (Other)
  Sender: FDA-Public Use
  Company Number: 2005090206

PATIENT
  Sex: Female

DRUGS (4)
  1. XALATAN [Suspect]
     Indication: GLAUCOMA
     Dosage: 1 DROP (1 DROP IN 1 D), OPHTHALMIC
     Route: 047
     Dates: start: 20050401, end: 20050611
  2. LISADOR (ADIPHENINE, METAMIZOLE SODIUM, PROMETHAZINE) [Concomitant]
  3. TYLENOL (GELTAB) [Concomitant]
  4. ALPRAZOLAM [Concomitant]

REACTIONS (3)
  - BLINDNESS [None]
  - COUGH [None]
  - EYE DISORDER [None]
